FAERS Safety Report 6274549-3 (Version None)
Quarter: 2009Q3

REPORT INFORMATION
  Report Type: 
  Country: None (occurrence: None)
  Receive Date: 20090720
  Receipt Date: 20090223
  Transmission Date: 20100115
  Serious: No
  Sender: FDA-Public Use
  Company Number: JP-AVENTIS-200813507JP

PATIENT
  Age: 48 Year
  Sex: Male
  Weight: 70 kg

DRUGS (6)
  1. GLYBURIDE [Suspect]
     Indication: DIABETES MELLITUS
     Route: 048
     Dates: start: 20081014, end: 20081021
  2. GLYBURIDE [Suspect]
     Route: 048
     Dates: start: 20081022, end: 20081027
  3. GLYBURIDE [Suspect]
     Route: 048
     Dates: start: 20081028, end: 20081111
  4. GLYBURIDE [Suspect]
     Indication: HYPERGLYCAEMIA
     Route: 048
     Dates: start: 20081014, end: 20081021
  5. GLYBURIDE [Suspect]
     Route: 048
     Dates: start: 20081022, end: 20081027
  6. GLYBURIDE [Suspect]
     Route: 048
     Dates: start: 20081028, end: 20081111

REACTIONS (2)
  - HYPOGLYCAEMIA [None]
  - VISUAL IMPAIRMENT [None]
